FAERS Safety Report 8160706-8 (Version None)
Quarter: 2012Q1

REPORT INFORMATION
  Report Type: 
  Country: None (occurrence: None)
  Receive Date: 20120223
  Receipt Date: 20120214
  Transmission Date: 20120608
  Serious: Yes (Other)
  Sender: FDA-Public Use
  Company Number: PHHY2012US014649

PATIENT
  Age: 6 Month
  Sex: Female

DRUGS (3)
  1. CYCLOSPORINE [Suspect]
     Indication: IMMUNOSUPPRESSION
  2. MYCOPHENOLATE MOFETIL [Suspect]
     Indication: IMMUNOSUPPRESSION
  3. STEROIDS NOS [Concomitant]
     Indication: IMMUNOSUPPRESSION

REACTIONS (1)
  - PNEUMATOSIS INTESTINALIS [None]
